FAERS Safety Report 23846405 (Version 1)
Quarter: 2024Q2

REPORT INFORMATION
  Report Type: Spontaneous
  Country: US (occurrence: US)
  Receive Date: 20240513
  Receipt Date: 20240513
  Transmission Date: 20240715
  Serious: Yes (Other)
  Sender: FDA-Public Use
  Company Number: US-STRIDES ARCOLAB LIMITED-2023SP015814

PATIENT
  Age: 35 Year
  Sex: Male

DRUGS (23)
  1. DIAZEPAM [Suspect]
     Active Substance: DIAZEPAM
     Indication: Extrapyramidal disorder
     Dosage: 5 MILLIGRAM, BID
     Route: 030
  2. DIAZEPAM [Suspect]
     Active Substance: DIAZEPAM
     Dosage: 5 MILLIGRAM, BID
     Route: 048
  3. MEMANTINE [Suspect]
     Active Substance: MEMANTINE
     Indication: Extrapyramidal disorder
     Dosage: 5 MILLIGRAM, BID
     Route: 048
  4. DIPHENHYDRAMINE [Suspect]
     Active Substance: DIPHENHYDRAMINE
     Indication: Extrapyramidal disorder
     Dosage: UNK, (IV FLUID HYDRATION WITH INTRAMUSCULAR DIPHENHYDRAMINE)
     Route: 030
  5. DIPHENHYDRAMINE [Suspect]
     Active Substance: DIPHENHYDRAMINE
     Dosage: 50 MILLIGRAM (TWO CONSECUTIVE DOSES)
     Route: 030
  6. DIPHENHYDRAMINE [Suspect]
     Active Substance: DIPHENHYDRAMINE
     Dosage: 50 MILLIGRAM
     Route: 030
  7. BENZTROPINE [Suspect]
     Active Substance: BENZTROPINE
     Indication: Extrapyramidal disorder
     Dosage: 2 MILLIGRAM, BID
     Route: 048
  8. BENZTROPINE [Suspect]
     Active Substance: BENZTROPINE
     Dosage: 2 MILLIGRAM, BID
     Route: 030
  9. BENZTROPINE [Suspect]
     Active Substance: BENZTROPINE
     Dosage: 2.5 MILLIGRAM, BID
     Route: 048
  10. HALOPERIDOL DECANOATE [Concomitant]
     Active Substance: HALOPERIDOL DECANOATE
     Indication: Psychotic disorder
     Dosage: 100 MILLIGRAM
     Route: 030
  11. HALOPERIDOL DECANOATE [Concomitant]
     Active Substance: HALOPERIDOL DECANOATE
     Dosage: 100 MILLIGRAM, (ADDITIONAL DOSE)
     Route: 030
  12. RISPERIDONE [Concomitant]
     Active Substance: RISPERIDONE
     Indication: Psychotic disorder
     Dosage: 6 MILLIGRAM DAILY
     Route: 048
  13. RISPERIDONE [Concomitant]
     Active Substance: RISPERIDONE
     Dosage: 1 MILLIGRAM, BID
     Route: 048
  14. VALPROIC ACID [Concomitant]
     Active Substance: VALPROIC ACID
     Indication: Psychotic disorder
     Dosage: UNK
     Route: 065
  15. VALPROIC ACID [Concomitant]
     Active Substance: VALPROIC ACID
     Dosage: 750 MILLIGRAM, BID
     Route: 048
  16. VALPROIC ACID [Concomitant]
     Active Substance: VALPROIC ACID
     Dosage: 500 MILLIGRAM, BID
     Route: 048
  17. PERMETHRIN [Concomitant]
     Active Substance: PERMETHRIN
     Indication: Lice infestation
     Dosage: UNK
     Route: 065
  18. LORAZEPAM [Concomitant]
     Active Substance: LORAZEPAM
     Indication: Extrapyramidal disorder
     Dosage: 2 MILLIGRAM, EVERY 6 HRS
     Route: 042
  19. LORAZEPAM [Concomitant]
     Active Substance: LORAZEPAM
     Dosage: 2 MILLIGRAM, EVERY 8 HRS
     Route: 042
  20. LORAZEPAM [Concomitant]
     Active Substance: LORAZEPAM
     Dosage: 2 MILLIGRAM, EVERY 8 HRS
     Route: 048
  21. LORAZEPAM [Concomitant]
     Active Substance: LORAZEPAM
     Dosage: 1 MILLIGRAM, EVERY 8 HRS
     Route: 048
  22. LORAZEPAM [Concomitant]
     Active Substance: LORAZEPAM
     Dosage: 1 MILLIGRAM, AT BED TIME
     Route: 048
  23. LACTATED RINGERS SOLUTION [Concomitant]
     Active Substance: CALCIUM CHLORIDE\POTASSIUM CHLORIDE\SODIUM CHLORIDE\SODIUM LACTATE
     Indication: Extrapyramidal disorder
     Dosage: UNK, (TOTAL OF 2L)
     Route: 065

REACTIONS (2)
  - Therapy partial responder [Unknown]
  - Off label use [Unknown]
